FAERS Safety Report 4341458-6 (Version None)
Quarter: 2004Q2

REPORT INFORMATION
  Report Type: 
  Country: None (occurrence: None)
  Receive Date: 20040419
  Receipt Date: 20040415
  Transmission Date: 20050107
  Serious: Yes (Disabling)
  Sender: FDA-Public Use
  Company Number: 7812

PATIENT
  Age: 24 Year
  Sex: Male

DRUGS (3)
  1. VINCRISTINE [Suspect]
     Indication: SYNOVIAL SARCOMA
     Dosage: 1.5 MG/M2 FREQ UNK; UNK
     Route: 065
  2. IFOSFAMIDE [Concomitant]
  3. DOXORUBICIN HCL [Concomitant]

REACTIONS (1)
  - EYELID PTOSIS [None]
